FAERS Safety Report 8804374 (Version 3)
Quarter: 2013Q1

REPORT INFORMATION
  Report Type: Spontaneous
  Country: US (occurrence: US)
  Receive Date: 20120924
  Receipt Date: 20130116
  Transmission Date: 20140127
  Serious: Yes (Hospitalization)
  Sender: FDA-Public Use
  Company Number: US-BAYER-2012-097770

PATIENT
  Age: 37 Year
  Sex: Female

DRUGS (6)
  1. YAZ [Suspect]
  2. YASMIN [Suspect]
  3. OCELLA [Suspect]
  4. IRON [Concomitant]
     Dosage: ONE TAB (INTERPRETED AS TABLET) QDAY (INTERPRETED AS EVERYDAY)
     Route: 048
  5. LASIX [Concomitant]
  6. GLYCINE [Concomitant]
     Dosage: 1000 ML, UNK

REACTIONS (2)
  - Injury [None]
  - Pulmonary embolism [None]
